FAERS Safety Report 5154951-3 (Version None)
Quarter: 2006Q4

REPORT INFORMATION
  Report Type: 
  Country: None (occurrence: None)
  Receive Date: 20061121
  Receipt Date: 20060622
  Transmission Date: 20070319
  Serious: Yes (Life-Threatening, Hospitalization)
  Sender: FDA-Public Use
  Company Number: DE-ROCHE-452669

PATIENT
  Age: 72 Year
  Sex: Female

DRUGS (3)
  1. RIVOTRIL [Suspect]
     Route: 048
     Dates: start: 20060415
  2. DYSPORT [Interacting]
     Indication: DYSPHONIA
     Route: 030
     Dates: start: 20060606
  3. BOTULINUM TOXIN NOS [Interacting]
     Indication: DYSPHONIA
     Dosage: APPLIED LOCALLY TO LARYNX.
     Route: 050
     Dates: start: 19860615

REACTIONS (2)
  - DRUG INTERACTION [None]
  - DYSPNOEA [None]
